FAERS Safety Report 11977851 (Version 2)
Quarter: 2016Q1

REPORT INFORMATION
  Report Type: Spontaneous
  Country: US (occurrence: US)
  Receive Date: 20160129
  Receipt Date: 20160210
  Transmission Date: 20160526
  Serious: No
  Sender: FDA-Public Use
  Company Number: GXBR2016US000482

PATIENT
  Sex: Female
  Weight: 72.56 kg

DRUGS (4)
  1. SIMVASTATIN. [Concomitant]
     Active Substance: SIMVASTATIN
     Indication: BLOOD CHOLESTEROL
     Dosage: 10 MG, QD
     Route: 048
  2. OMEPRAZOLE. [Concomitant]
     Active Substance: OMEPRAZOLE
     Indication: GASTROOESOPHAGEAL REFLUX DISEASE
     Dosage: 10 MG, QD
     Route: 048
  3. BABY ASPIRIN [Concomitant]
     Active Substance: ASPIRIN
     Dosage: 81 MG, QD
     Route: 048
  4. CLOBETASOL PROPIONATE. [Suspect]
     Active Substance: CLOBETASOL PROPIONATE
     Indication: LICHEN SCLEROSUS
     Dosage: 0.05 %, PRN
     Route: 061
     Dates: start: 201003

REACTIONS (11)
  - Solar lentigo [Not Recovered/Not Resolved]
  - Miliaria [Not Recovered/Not Resolved]
  - Dry skin [Not Recovered/Not Resolved]
  - Skin atrophy [Not Recovered/Not Resolved]
  - Gingivitis [Not Recovered/Not Resolved]
  - Stomatitis [Not Recovered/Not Resolved]
  - Dyspnoea [Not Recovered/Not Resolved]
  - Macule [Not Recovered/Not Resolved]
  - Genital atrophy [Not Recovered/Not Resolved]
  - Skin discolouration [Not Recovered/Not Resolved]
  - Pruritus generalised [Not Recovered/Not Resolved]
